FAERS Safety Report 8267787-1 (Version None)
Quarter: 2012Q2

REPORT INFORMATION
  Report Type: 
  Country: None (occurrence: None)
  Receive Date: 20120409
  Receipt Date: 20120402
  Transmission Date: 20120825
  Serious: Yes (Hospitalization, Other)
  Sender: FDA-Public Use
  Company Number: US-BAYER-2011-045888

PATIENT
  Age: 40 Year
  Sex: Female

DRUGS (20)
  1. YAZ [Suspect]
     Indication: CONTRACEPTION
     Dosage: UNK
     Route: 048
     Dates: start: 20030601, end: 20100101
  2. YAZ [Suspect]
     Indication: PREMENSTRUAL SYNDROME
  3. GEODON [Concomitant]
     Indication: POST-TRAUMATIC STRESS DISORDER
     Dosage: UNK
     Dates: start: 20060101
  4. ALBUTEROL [Concomitant]
     Dosage: 2 PUFFS AS NEEDED
  5. YAZ [Suspect]
  6. YASMIN [Suspect]
     Indication: PREMENSTRUAL SYNDROME
  7. EFFEXOR [Concomitant]
     Indication: DEPRESSION
     Dosage: UNK
     Dates: start: 20000101, end: 20061101
  8. ZYRTEC [Concomitant]
     Indication: MULTIPLE ALLERGIES
     Dosage: UNK
     Dates: start: 20030101
  9. MELATONIN [Concomitant]
     Dosage: 20 MG, DAILY
  10. ACTOS [Concomitant]
     Dosage: 15 MG, DAILY
  11. VALIUM [Concomitant]
     Dosage: 5 MG, TID
  12. DILAUDID [Concomitant]
     Dosage: 4MG ONE TO TWO TABS EVERY 3 HOURS
  13. YASMIN [Suspect]
     Indication: CONTRACEPTION
     Dosage: UNK
     Route: 048
     Dates: start: 20030601, end: 20100101
  14. YAZ [Suspect]
     Indication: ACNE
  15. SPIRONOLACTONE [Concomitant]
     Indication: POLYCYSTIC OVARIES
     Dosage: UNK
     Dates: start: 20030101
  16. YASMIN [Suspect]
     Indication: ACNE
  17. RHINOCORT [Concomitant]
     Indication: MULTIPLE ALLERGIES
     Dosage: UNK
     Dates: start: 20030101, end: 20090101
  18. CYMBALTA [Concomitant]
     Indication: DEPRESSION
     Dosage: UNK
     Dates: start: 20060101
  19. YASMIN [Suspect]
  20. IBUPROFEN (ADVIL) [Concomitant]
     Dosage: UNK
     Dates: start: 19970101, end: 20070101

REACTIONS (12)
  - PAIN [None]
  - INJURY [None]
  - PULMONARY EMBOLISM [None]
  - CHOLECYSTITIS CHRONIC [None]
  - GALLBLADDER DISORDER [None]
  - MYOCARDIAL INFARCTION [None]
  - DEEP VEIN THROMBOSIS [None]
  - CEREBROVASCULAR ACCIDENT [None]
  - DEPRESSION [None]
  - ANXIETY [None]
  - FEAR [None]
  - ANHEDONIA [None]
